FAERS Safety Report 9801452 (Version 3)
Quarter: 2014Q1

REPORT INFORMATION
  Report Type: Report from Study
  Country: CA (occurrence: CA)
  Receive Date: 20140107
  Receipt Date: 20140122
  Transmission Date: 20141002
  Serious: Yes (Death, Hospitalization, Other)
  Sender: FDA-Public Use
  Company Number: CA-ABBVIE-14P-028-1185353-00

PATIENT
  Age: 87 Year
  Sex: Male
  Weight: 40.09 kg

DRUGS (1)
  1. LUPRON DEPOT [Suspect]
     Indication: PROSTATE CANCER
     Route: 030
     Dates: start: 20120424

REACTIONS (19)
  - Gastrointestinal haemorrhage [Fatal]
  - Syncope [Fatal]
  - Respiratory arrest [Unknown]
  - Back pain [Unknown]
  - Decreased appetite [Unknown]
  - Urine output decreased [Unknown]
  - Loss of consciousness [Unknown]
  - Aortic aneurysm [Not Recovered/Not Resolved]
  - Atelectasis [Not Recovered/Not Resolved]
  - Pulmonary granuloma [Not Recovered/Not Resolved]
  - Cholelithiasis [Not Recovered/Not Resolved]
  - Hepatic lesion [Not Recovered/Not Resolved]
  - Adrenal mass [Not Recovered/Not Resolved]
  - Diverticulum intestinal [Not Recovered/Not Resolved]
  - Osteosarcoma metastatic [Not Recovered/Not Resolved]
  - Incisional hernia [Not Recovered/Not Resolved]
  - Intestinal obstruction [Not Recovered/Not Resolved]
  - Pneumonia aspiration [Not Recovered/Not Resolved]
  - Adrenal adenoma [Not Recovered/Not Resolved]
